FAERS Safety Report 11239203 (Version 1)
Quarter: 2015Q3

REPORT INFORMATION
  Report Type: Spontaneous
  Country: FR (occurrence: FR)
  Receive Date: 20150706
  Receipt Date: 20150706
  Transmission Date: 20151125
  Serious: Yes (Other)
  Sender: FDA-Public Use
  Company Number: FR-HTU-2015FR011314

PATIENT
  Age: 26 Year
  Sex: Male

DRUGS (10)
  1. SULFARLEM [Concomitant]
     Active Substance: ANETHOLTRITHION
  2. OXYNORM [Concomitant]
     Active Substance: OXYCODONE HYDROCHLORIDE
  3. PRIMPERAN [Suspect]
     Active Substance: METOCLOPRAMIDE HYDROCHLORIDE
     Indication: NAUSEA
     Dosage: 10 MG, SINGLE
     Route: 048
     Dates: start: 20150601, end: 20150601
  4. BLEOMYCIN [Concomitant]
     Active Substance: BLEOMYCIN SULFATE
  5. ALOXI [Suspect]
     Active Substance: PALONOSETRON HYDROCHLORIDE
     Indication: NAUSEA
     Dosage: 0.25 MG, SINGLE
     Route: 042
     Dates: start: 20150601, end: 20150601
  6. MOVICOL [Concomitant]
     Active Substance: POLYETHYLENE GLYCOL 3350\POTASSIUM CHLORIDE\SODIUM BICARBONATE\SODIUM CHLORIDE
     Dosage: UNK
  7. LAROXYL [Suspect]
     Active Substance: AMITRIPTYLINE
     Indication: PAIN
     Dosage: 250 MG, SINGLE
     Route: 042
     Dates: start: 20150601, end: 20150601
  8. INNOHEP [Concomitant]
     Active Substance: TINZAPARIN SODIUM
     Dosage: 10000 IU, UNKNOWN
     Route: 058
  9. ETOPOSIDE. [Concomitant]
     Active Substance: ETOPOSIDE
  10. CISPLATIN. [Concomitant]
     Active Substance: CISPLATIN

REACTIONS (4)
  - Dyskinesia [Recovered/Resolved]
  - Muscle spasms [Recovered/Resolved]
  - Off label use [Unknown]
  - Trismus [Recovered/Resolved]

NARRATIVE: CASE EVENT DATE: 20150601
